FAERS Safety Report 7639214 (Version 9)
Quarter: 2013Q1

REPORT INFORMATION
  Report Type: Report from Study
  Country: DE (occurrence: DE)
  Receive Date: 20101025
  Receipt Date: 20130219
  Transmission Date: 20140127
  Serious: Yes (Hospitalization, Other)
  Sender: FDA-Public Use
  Company Number: PHHO2010DE15676

PATIENT
  Sex: Male
  Weight: 84 kg

DRUGS (6)
  1. FTY 720 [Suspect]
     Indication: MULTIPLE SCLEROSIS
     Dosage: DOSE BLINDED
     Route: 048
     Dates: start: 20080930, end: 20100315
  2. FTY 720 [Suspect]
     Dosage: 0.5 MG, QD
     Route: 048
     Dates: start: 20100315, end: 20101015
  3. TRILEPTAL [Concomitant]
     Indication: NEURALGIA
     Dosage: 300 MG, TID
     Dates: start: 20070910
  4. GABAPENTIN [Concomitant]
     Indication: NEURALGIA
     Dosage: 800 MG, QID
     Dates: start: 20070910
  5. PALEXIA [Concomitant]
     Indication: NEURALGIA
     Dosage: 250 MG, BID
  6. AMITRIPTYLINE [Concomitant]
     Indication: DEPRESSION
     Dosage: 75 MG DAILY
     Dates: start: 20100521

REACTIONS (5)
  - Malignant melanoma [Not Recovered/Not Resolved]
  - Dysplastic naevus [Not Recovered/Not Resolved]
  - Papilloma [Not Recovered/Not Resolved]
  - Pulmonary mass [Not Recovered/Not Resolved]
  - Multiple sclerosis relapse [Unknown]
